FAERS Safety Report 5405590-8 (Version None)
Quarter: 2007Q3

REPORT INFORMATION
  Report Type: 
  Country: None (occurrence: None)
  Receive Date: 20070803
  Receipt Date: 20070726
  Transmission Date: 20080115
  Serious: Yes (Other)
  Sender: FDA-Public Use
  Company Number: ZA-ABBOTT-07P-143-0375817-00

PATIENT
  Age: 8 Year
  Sex: Male

DRUGS (6)
  1. VALPROATE SODIUM [Suspect]
     Indication: CONVULSION
     Route: 048
     Dates: start: 20070101
  2. DEXAMETHASONE 0.5MG TAB [Concomitant]
     Indication: INTRACRANIAL PRESSURE INCREASED
     Route: 048
     Dates: start: 20070221
  3. ACETAZOLAMIDE [Concomitant]
     Indication: INTRACRANIAL PRESSURE INCREASED
     Route: 048
     Dates: start: 20070223
  4. VINCRISTINE [Concomitant]
     Indication: MEDULLOBLASTOMA
     Dates: start: 20070124
  5. ETOPOSIDE [Concomitant]
     Indication: MEDULLOBLASTOMA
     Dates: start: 20070124
  6. CARBOPLATIN [Concomitant]
     Indication: MEDULLOBLASTOMA
     Dates: start: 20070124

REACTIONS (4)
  - BRAIN NEOPLASM [None]
  - DYSKINESIA [None]
  - MUSCLE CONTRACTIONS INVOLUNTARY [None]
  - THROMBOCYTOPENIA [None]
